FAERS Safety Report 22907454 (Version 2)
Quarter: 2023Q4

REPORT INFORMATION
  Report Type: Spontaneous
  Country: US (occurrence: US)
  Receive Date: 20230905
  Receipt Date: 20231019
  Transmission Date: 20240110
  Serious: Yes (Other)
  Sender: FDA-Public Use
  Company Number: US-INCYTE CORPORATION-2023IN009148

PATIENT

DRUGS (2)
  1. JAKAFI [Suspect]
     Active Substance: RUXOLITINIB
     Indication: Myelofibrosis
     Dosage: 10 MILLIGRAM, BID
     Route: 048
     Dates: start: 20221130
  2. PELABRESIB MONOHYDRATE [Suspect]
     Active Substance: PELABRESIB MONOHYDRATE
     Indication: Myelofibrosis
     Dosage: 75 MILLIGRAM, ONCE A DAY ON DAYS 1-14 AND OFF DAYS 15-21
     Route: 048
     Dates: start: 20221130, end: 20230705

REACTIONS (4)
  - Chloroma [Not Recovered/Not Resolved]
  - Myelofibrosis [Unknown]
  - Monocytosis [Unknown]
  - Disease progression [Unknown]

NARRATIVE: CASE EVENT DATE: 20230629
